FAERS Safety Report 6494152-X (Version None)
Quarter: 2009Q4

REPORT INFORMATION
  Report Type: 
  Country: None (occurrence: None)
  Receive Date: 20091214
  Receipt Date: 20090112
  Transmission Date: 20100525
  Serious: No
  Sender: FDA-Public Use
  Company Number: US-BRISTOL-MYERS SQUIBB COMPANY-14467088

PATIENT
  Age: 12 Year
  Sex: Male
  Weight: 30 kg

DRUGS (6)
  1. ABILIFY [Suspect]
     Indication: AFFECTIVE DISORDER
     Dosage: ALSO TAKEN ON 25NOV2008
     Dates: start: 20081124, end: 20081125
  2. ABILIFY [Suspect]
     Indication: BIPOLAR DISORDER
     Dosage: ALSO TAKEN ON 25NOV2008
     Dates: start: 20081124, end: 20081125
  3. ABILIFY [Suspect]
     Indication: ATTENTION DEFICIT/HYPERACTIVITY DISORDER
     Dosage: ALSO TAKEN ON 25NOV2008
     Dates: start: 20081124, end: 20081125
  4. RISPERDAL [Concomitant]
  5. BENADRYL [Concomitant]
     Dosage: EVERY NIGHT
  6. DEPAKOTE [Concomitant]
     Dosage: AT BEDTIME
     Dates: start: 20081110

REACTIONS (1)
  - SEDATION [None]
